FAERS Safety Report 4834938-8 (Version None)
Quarter: 2005Q4

REPORT INFORMATION
  Report Type: 
  Country: None (occurrence: None)
  Receive Date: 20051122
  Receipt Date: 20051121
  Transmission Date: 20060501
  Serious: Yes (Other)
  Sender: FDA-Public Use
  Company Number: US-BRISTOL-MYERS SQUIBB COMPANY-13189592

PATIENT
  Age: 57 Year
  Sex: Female

DRUGS (1)
  1. SUSTIVA [Suspect]

REACTIONS (1)
  - ADVERSE DRUG REACTION [None]
